FAERS Safety Report 14669303 (Version 1)
Quarter: 2018Q1

REPORT INFORMATION
  Report Type: Spontaneous
  Country: SI (occurrence: SI)
  Receive Date: 20180322
  Receipt Date: 20180322
  Transmission Date: 20180509
  Serious: Yes (Hospitalization, Other)
  Sender: FDA-Public Use
  Company Number: SI-PFIZER INC-2018113521

PATIENT
  Sex: Male

DRUGS (2)
  1. METHYLPREDNISOLONE. [Concomitant]
     Active Substance: METHYLPREDNISOLONE
     Dosage: 64 MG/DL, UNK
     Route: 048
  2. ATORVASTATIN CALCIUM. [Suspect]
     Active Substance: ATORVASTATIN CALCIUM
     Dosage: 20 MG, UNK
     Route: 065

REACTIONS (12)
  - Tongue spasm [Unknown]
  - Fatigue [Unknown]
  - Gait disturbance [Unknown]
  - Tremor [Unknown]
  - Abnormal dreams [Unknown]
  - Encephalitis [Recovered/Resolved]
  - Nervousness [Unknown]
  - Mental disorder [Unknown]
  - Dysarthria [Unknown]
  - Facial paresis [Unknown]
  - Movement disorder [Unknown]
  - Speech disorder [Unknown]
